FAERS Safety Report 6885935-2 (Version None)
Quarter: 2010Q3

REPORT INFORMATION
  Report Type: 
  Country: None (occurrence: None)
  Receive Date: 20100729
  Receipt Date: 20080622
  Transmission Date: 20110219
  Serious: No
  Sender: FDA-Public Use
  Company Number: US-PFIZER INC-2008052837

PATIENT
  Sex: Female
  Weight: 61.363 kg

DRUGS (4)
  1. CELEBREX [Suspect]
     Indication: DUPUYTREN'S CONTRACTURE
     Route: 048
     Dates: start: 20080601
  2. REMERON [Concomitant]
     Indication: BIPOLAR DISORDER
  3. VALPROIC ACID [Concomitant]
     Indication: BIPOLAR DISORDER
  4. ATIVAN [Concomitant]
     Indication: BIPOLAR DISORDER

REACTIONS (1)
  - OEDEMA PERIPHERAL [None]
